FAERS Safety Report 5919075-3 (Version None)
Quarter: 2008Q4

REPORT INFORMATION
  Report Type: 
  Country: None (occurrence: None)
  Receive Date: 20081015
  Receipt Date: 20081002
  Transmission Date: 20090506
  Serious: Yes (Hospitalization)
  Sender: FDA-Public Use
  Company Number: FR-GENENTECH-269608

PATIENT
  Sex: Female

DRUGS (7)
  1. HERCEPTIN [Suspect]
     Indication: BREAST CANCER
     Dosage: 560 MG, SINGLE
     Route: 042
     Dates: start: 20070913
  2. HERCEPTIN [Suspect]
     Dosage: 420 MG, UNK
     Route: 042
     Dates: end: 20080717
  3. TAXOTERE [Suspect]
     Indication: BREAST CANCER
     Dosage: 190 MG, UNK
     Route: 048
     Dates: start: 20070410, end: 20070522
  4. FARMARUBICINE [Suspect]
     Indication: BREAST CANCER
     Dosage: 180 MG, UNK
     Route: 042
     Dates: start: 20070206, end: 20070320
  5. ENDOXAN [Suspect]
     Indication: BREAST CANCER
     Dosage: 900 MG, UNK
     Route: 042
     Dates: start: 20070206, end: 20070320
  6. FLUOROURACIL [Suspect]
     Indication: DRUG USE FOR UNKNOWN INDICATION
     Dosage: 900 MG, UNK
     Dates: start: 20070206, end: 20070320
  7. NOLVADEX [Suspect]
     Indication: DRUG USE FOR UNKNOWN INDICATION
     Dosage: UNK

REACTIONS (1)
  - ACUTE MYELOID LEUKAEMIA [None]
